FAERS Safety Report 6031661-1 (Version None)
Quarter: 2009Q1

REPORT INFORMATION
  Report Type: 
  Country: None (occurrence: None)
  Receive Date: 20090107
  Receipt Date: 20090107
  Transmission Date: 20090719
  Serious: Yes (Hospitalization, Other)
  Sender: FDA-Public Use
  Company Number: None

PATIENT
  Sex: Female

DRUGS (1)
  1. PACKED CELLS UNIT #38 E DONOR 34777 FROM AMER RED CROSS - FORT WAYNE [Suspect]
     Indication: ANAEMIA
     Dosage: 182 ML PRODUCT 04710 I.V.
     Route: 042
     Dates: start: 20081211

REACTIONS (1)
  - PRODUCT CONTAMINATION [None]
